FAERS Safety Report 4346724-6 (Version None)
Quarter: 2004Q1

REPORT INFORMATION
  Report Type: 
  Country: None (occurrence: None)
  Receive Date: 20040329
  Receipt Date: 20031203
  Transmission Date: 20041129
  Serious: No
  Sender: FDA-Public Use
  Company Number: USA031253917

PATIENT
  Age: 53 Year
  Sex: Female
  Weight: 54 kg

DRUGS (4)
  1. STRATTERA [Suspect]
     Indication: ATTENTION DEFICIT/HYPERACTIVITY DISORDER
     Dates: start: 20031129, end: 20031202
  2. LEVOXYL [Concomitant]
  3. AMBIEN [Concomitant]
  4. BLACK COHOSH [Concomitant]

REACTIONS (4)
  - DISEASE PROGRESSION [None]
  - DIZZINESS [None]
  - FEELING ABNORMAL [None]
  - PUPILS UNEQUAL [None]
